FAERS Safety Report 4811050-5 (Version None)
Quarter: 2005Q4

REPORT INFORMATION
  Report Type: 
  Country: None (occurrence: None)
  Receive Date: 20051025
  Receipt Date: 20051017
  Transmission Date: 20060501
  Serious: Yes (Other)
  Sender: FDA-Public Use
  Company Number: EM2005-0527

PATIENT
  Age: 14 Year
  Sex: Female

DRUGS (6)
  1. TOBI [Suspect]
     Indication: CYSTIC FIBROSIS
     Dosage: 300 MG, BID, INHALATION
     Route: 055
     Dates: start: 20051009
  2. ALBUTEROL [Concomitant]
  3. CROMOLYN SODIUM (CROMOGLICATE SODIUM) [Concomitant]
  4. ADEKS (ZINC) [Concomitant]
  5. RANITIDINE [Concomitant]
  6. CREON-20 [Concomitant]

REACTIONS (4)
  - BREAST HAEMORRHAGE [None]
  - EPISTAXIS [None]
  - POLLAKIURIA [None]
  - VAGINAL HAEMORRHAGE [None]
